FAERS Safety Report 9697521 (Version 1)
Quarter: 2013Q4

REPORT INFORMATION
  Report Type: Report from Study
  Country: CA (occurrence: CA)
  Receive Date: 20131120
  Receipt Date: 20131120
  Transmission Date: 20140711
  Serious: Yes (Other)
  Sender: FDA-Public Use
  Company Number: CA-JNJFOC-20131109547

PATIENT
  Age: 69 Year
  Sex: Male
  Weight: 94.2 kg

DRUGS (7)
  1. REMICADE [Suspect]
     Indication: COLITIS ULCERATIVE
     Route: 042
     Dates: start: 201207
  2. ATENOLOL [Concomitant]
     Route: 065
  3. CRESTOR [Concomitant]
     Route: 065
  4. OMEPRAZOLE [Concomitant]
     Route: 065
  5. FLOMAX [Concomitant]
     Route: 065
  6. MEZAVANT [Concomitant]
     Route: 065
  7. FENOFIBRATE [Concomitant]
     Route: 065

REACTIONS (2)
  - Renal pain [Not Recovered/Not Resolved]
  - Cystitis [Recovered/Resolved]
